FAERS Safety Report 4673782-1 (Version None)
Quarter: 2005Q2

REPORT INFORMATION
  Report Type: 
  Country: None (occurrence: None)
  Receive Date: 20050525
  Receipt Date: 20050516
  Transmission Date: 20051028
  Serious: Yes (Other)
  Sender: FDA-Public Use
  Company Number: US-ABBOTT-05P-163-0300657-00

PATIENT
  Sex: Male

DRUGS (9)
  1. OMNICEF [Suspect]
     Indication: DRUG USE FOR UNKNOWN INDICATION
     Dates: start: 20050328
  2. CELECOXIB [Suspect]
     Indication: DRUG USE FOR UNKNOWN INDICATION
     Dates: start: 20040108
  3. BENZONATATE [Suspect]
     Indication: DRUG USE FOR UNKNOWN INDICATION
     Dates: start: 20050328
  4. FLUTICASONE PROPIONATE [Suspect]
     Indication: DRUG USE FOR UNKNOWN INDICATION
     Dates: start: 20050328
  5. ALLEGRA D 24 HOUR [Suspect]
     Indication: DRUG USE FOR UNKNOWN INDICATION
     Dosage: 12 HOUR
     Dates: start: 20050328
  6. HYDROCHLOROTHIAZIDE/OLMESARTAN [Concomitant]
     Indication: DRUG USE FOR UNKNOWN INDICATION
  7. SIMVASTATIN [Concomitant]
     Indication: DRUG USE FOR UNKNOWN INDICATION
  8. AMOXICILLIN [Concomitant]
     Indication: DRUG USE FOR UNKNOWN INDICATION
  9. TUSSIN DM [Concomitant]
     Indication: DRUG USE FOR UNKNOWN INDICATION

REACTIONS (4)
  - ARTERIOGRAM CAROTID ABNORMAL [None]
  - CEREBRAL ISCHAEMIA [None]
  - CHRONIC SINUSITIS [None]
  - NUCLEAR MAGNETIC RESONANCE IMAGING BRAIN ABNORMAL [None]
